FAERS Safety Report 13355448 (Version 1)
Quarter: 2017Q1

REPORT INFORMATION
  Report Type: Spontaneous
  Country: JP (occurrence: JP)
  Receive Date: 20170321
  Receipt Date: 20170321
  Transmission Date: 20170429
  Serious: Yes (Hospitalization, Other)
  Sender: FDA-Public Use
  Company Number: JP-PFIZER INC-2017059214

PATIENT
  Age: 88 Year
  Sex: Female
  Weight: 41.2 kg

DRUGS (10)
  1. CLOPIDOGREL [Concomitant]
     Active Substance: CLOPIDOGREL BISULFATE
     Dosage: UNK
  2. QUETIAPINE. [Concomitant]
     Active Substance: QUETIAPINE
     Dosage: UNK
  3. ANAEMETRO 500MG [Suspect]
     Active Substance: METRONIDAZOLE
     Indication: PSEUDOMEMBRANOUS COLITIS
     Dosage: 100 ML, 3X/DAY
     Route: 041
     Dates: start: 20170127, end: 20170205
  4. CRESTOR [Concomitant]
     Active Substance: ROSUVASTATIN CALCIUM
     Dosage: UNK
  5. CARVEDILOL. [Concomitant]
     Active Substance: CARVEDILOL
     Dosage: UNK
  6. TAKECAB [Concomitant]
     Active Substance: VONOPRAZAN FUMURATE
     Dosage: UNK
  7. DONEPEZIL. [Concomitant]
     Active Substance: DONEPEZIL
     Dosage: UNK
  8. BUFFERIN COMBINATION TABLET A81 [Concomitant]
     Dosage: UNK
  9. NICORANDIL [Concomitant]
     Active Substance: NICORANDIL
     Dosage: UNK
  10. ANAEMETRO 500MG [Suspect]
     Active Substance: METRONIDAZOLE
     Dosage: 100 ML, 2X/DAY
     Route: 041
     Dates: start: 20170206, end: 20170208

REACTIONS (2)
  - Nervous system disorder [Recovering/Resolving]
  - Gastrointestinal disorder [Recovering/Resolving]

NARRATIVE: CASE EVENT DATE: 20170204
